FAERS Safety Report 9930218 (Version 1)
Quarter: 2014Q1

REPORT INFORMATION
  Report Type: Spontaneous
  Country: US (occurrence: US)
  Receive Date: 20140227
  Receipt Date: 20140227
  Transmission Date: 20141002
  Serious: No
  Sender: FDA-Public Use
  Company Number: US-AMGEN-USASP2013077091

PATIENT
  Age: 59 Year
  Sex: Female
  Weight: 113.38 kg

DRUGS (17)
  1. ENBREL [Suspect]
     Indication: PRODUCT USED FOR UNKNOWN INDICATION
     Dosage: 50 MG, QWK
     Route: 058
     Dates: start: 201305
  2. NAPROXEN [Concomitant]
     Dosage: 250 MG, UNK
  3. LEFLUNOMIDE [Concomitant]
     Dosage: 10 MG, UNK
  4. ASPIRIN BUFFERED [Concomitant]
     Dosage: 324 MG, UNK
  5. TRAMADOL HCL [Concomitant]
     Dosage: 50 MG, UNK
  6. PLAVIX [Concomitant]
     Dosage: 75 MG, UNK
  7. METOPROLOL [Concomitant]
     Dosage: 100 MG, UNK
  8. AMLODIPINE [Concomitant]
     Dosage: 2.5 MG, UNK
  9. DEXILANT [Concomitant]
     Dosage: 30 MG, UNK
  10. VITAMIN D3 [Concomitant]
     Dosage: 1000 UNIT
  11. LOSARTAN POTASSIUM [Concomitant]
     Dosage: 100 MG, UNK
  12. ALBUTEROL                          /00139501/ [Concomitant]
     Dosage: 90 MUG, UNK
  13. ATORVASTATIN [Concomitant]
     Dosage: 20 MG, UNK
  14. LORAZEPAM [Concomitant]
     Dosage: 0.5 MG, UNK
  15. BRIMONIDINE [Concomitant]
     Dosage: SOL 0.2% OP
  16. CLONIDINE [Concomitant]
     Dosage: 0.1 MG, UNK
  17. PLAQUENIL                          /00072602/ [Concomitant]
     Dosage: 200 MG, UNK

REACTIONS (4)
  - Skin ulcer [Unknown]
  - Wound secretion [Unknown]
  - Adverse drug reaction [Unknown]
  - Skin mass [Unknown]
